FAERS Safety Report 11502127 (Version 1)
Quarter: 2015Q3

REPORT INFORMATION
  Report Type: Spontaneous
  Country: US (occurrence: US)
  Receive Date: 20150914
  Receipt Date: 20150914
  Transmission Date: 20151125
  Serious: Yes (Other)
  Sender: FDA-Public Use
  Company Number: US-ENDO PHARMACEUTICALS INC.-2015-002744

PATIENT
  Age: 43 Year
  Sex: Female
  Weight: 46.76 kg

DRUGS (5)
  1. MOGADON [Concomitant]
     Active Substance: NITRAZEPAM
     Indication: CONVULSION PROPHYLAXIS
     Route: 048
     Dates: start: 1986
  2. PREDNISONE TABLETS [Suspect]
     Active Substance: PREDNISONE
     Indication: SYSTEMIC LUPUS ERYTHEMATOSUS
  3. DILANTIN [Concomitant]
     Active Substance: PHENYTOIN
     Indication: CONVULSION PROPHYLAXIS
     Route: 048
     Dates: start: 1980
  4. TEGRETOL [Concomitant]
     Active Substance: CARBAMAZEPINE
     Indication: CONVULSION PROPHYLAXIS
     Route: 048
     Dates: start: 1979
  5. PREDNISONE TABLETS [Suspect]
     Active Substance: PREDNISONE
     Indication: CUTANEOUS LUPUS ERYTHEMATOSUS
     Route: 065

REACTIONS (1)
  - Myocardial infarction [Recovered/Resolved]

NARRATIVE: CASE EVENT DATE: 200101
